FAERS Safety Report 6961636-7 (Version None)
Quarter: 2010Q3

REPORT INFORMATION
  Report Type: 
  Country: None (occurrence: None)
  Receive Date: 20100901
  Receipt Date: 20100824
  Transmission Date: 20110219
  Serious: Yes (Death)
  Sender: FDA-Public Use
  Company Number: US-AMGEN-QUU433664

PATIENT
  Sex: Female

DRUGS (1)
  1. ENBREL [Suspect]
     Indication: PSORIASIS
     Dates: start: 20060101

REACTIONS (3)
  - CARDIAC DISORDER [None]
  - FAILURE TO THRIVE [None]
  - PERIPHERAL VASCULAR DISORDER [None]
